FAERS Safety Report 24707460 (Version 2)
Quarter: 2024Q4

REPORT INFORMATION
  Report Type: Spontaneous
  Country: US (occurrence: US)
  Receive Date: 20241206
  Receipt Date: 20241223
  Transmission Date: 20250115
  Serious: No
  Sender: MYLAN
  Company Number: US-MYLANLABS-2024M1106573

PATIENT
  Sex: Female
  Weight: 96.62 kg

DRUGS (1)
  1. BREYNA [Suspect]
     Active Substance: BUDESONIDE\FORMOTEROL FUMARATE
     Indication: Respiration abnormal
     Dosage: 80 MICROGRAM, QD (APPLIED TWO PUFF ONCE A DAY)
     Route: 055
     Dates: start: 20241024

REACTIONS (2)
  - Off label use [Unknown]
  - Device delivery system issue [Unknown]
